FAERS Safety Report 8760751 (Version 8)
Quarter: 2016Q3

REPORT INFORMATION
  Report Type: Spontaneous
  Country: US (occurrence: US)
  Receive Date: 20120830
  Receipt Date: 20160909
  Transmission Date: 20161109
  Serious: Yes (Hospitalization, Disabling, Other)
  Sender: FDA-Public Use
  Company Number: US-009507513-1208USA009020

PATIENT
  Sex: Female

DRUGS (4)
  1. NEXIUM [Concomitant]
     Active Substance: ESOMEPRAZOLE MAGNESIUM
     Indication: GASTROOESOPHAGEAL REFLUX DISEASE
     Dosage: UNK
     Dates: start: 2002, end: 2012
  2. FOSAMAX [Suspect]
     Active Substance: ALENDRONATE SODIUM
     Indication: OSTEOPENIA
     Dosage: 70 MG, QW
     Route: 048
     Dates: start: 20040827, end: 20080308
  3. FOSAMAX [Suspect]
     Active Substance: ALENDRONATE SODIUM
     Dosage: 70 MG QW
     Route: 048
     Dates: start: 20080413, end: 200809
  4. ALENDRONATE SODIUM. [Suspect]
     Active Substance: ALENDRONATE SODIUM
     Dosage: 70 MG, QW
     Route: 048
     Dates: start: 20080308, end: 200804

REACTIONS (27)
  - Invasive ductal breast carcinoma [Recovered/Resolved]
  - Breast conserving surgery [Unknown]
  - Fungal infection [Unknown]
  - Arthralgia [Unknown]
  - Acarodermatitis [Unknown]
  - Chronic gastritis [Recovered/Resolved]
  - Hand fracture [Recovered/Resolved]
  - Nausea [Unknown]
  - Constipation [Unknown]
  - Overweight [Unknown]
  - Joint dislocation [Unknown]
  - Senile osteoporosis [Not Recovered/Not Resolved]
  - Low turnover osteopathy [Not Recovered/Not Resolved]
  - Osteoarthritis [Not Recovered/Not Resolved]
  - Fracture delayed union [Recovered/Resolved]
  - Back pain [Unknown]
  - Skin abrasion [Unknown]
  - Fall [Unknown]
  - Femur fracture [Recovered/Resolved]
  - Femur fracture [Recovering/Resolving]
  - Breast conserving surgery [Unknown]
  - Road traffic accident [Unknown]
  - Hypertension [Not Recovered/Not Resolved]
  - Blood cholesterol increased [Not Recovered/Not Resolved]
  - Oedema peripheral [Unknown]
  - Femur fracture [Recovered/Resolved]
  - Biopsy lymph gland [Unknown]

NARRATIVE: CASE EVENT DATE: 2004
